FAERS Safety Report 8094998-0 (Version None)
Quarter: 2012Q1

REPORT INFORMATION
  Report Type: 
  Country: None (occurrence: None)
  Receive Date: 20120131
  Receipt Date: 20120131
  Transmission Date: 20120608
  Serious: No
  Sender: FDA-Public Use
  Company Number: None

PATIENT
  Age: 64 Year
  Sex: Male
  Weight: 74.842 kg

DRUGS (1)
  1. BUFFERIN EXTRA STRENGTH TABLETS [Suspect]
     Indication: ARTHRITIS
     Dosage: 500MG
     Route: 048
     Dates: start: 20111203, end: 20111203

REACTIONS (5)
  - ABNORMAL BEHAVIOUR [None]
  - SEDATION [None]
  - FEELING DRUNK [None]
  - FEELING ABNORMAL [None]
  - ARTHRALGIA [None]
